FAERS Safety Report 11230581 (Version 1)
Quarter: 2015Q2

REPORT INFORMATION
  Report Type: Spontaneous
  Country: US (occurrence: None)
  Receive Date: 20150629
  Receipt Date: 20150629
  Transmission Date: 20150821
  Serious: No
  Sender: FDA-Public Use
  Company Number: None

PATIENT
  Age: 42 Year
  Sex: Female
  Weight: 86.18 kg

DRUGS (7)
  1. GENERIC ADDERALL [Concomitant]
     Active Substance: AMPHETAMINE ASPARTATE\AMPHETAMINE SULFATE\DEXTROAMPHETAMINE SACCHARATE\DEXTROAMPHETAMINE SULFATE
  2. AMPHETAMINE SALTS 30 MG AUROBINDO [Suspect]
     Active Substance: AMPHETAMINE ASPARTATE\AMPHETAMINE SULFATE\DEXTROAMPHETAMINE SACCHARATE\DEXTROAMPHETAMINE SULFATE
     Indication: ATTENTION DEFICIT/HYPERACTIVITY DISORDER
     Dosage: 2 PILLS
     Route: 048
     Dates: start: 20150625, end: 20150626
  3. BUPROPION [Concomitant]
     Active Substance: BUPROPION
  4. GREEN JUICES [Concomitant]
  5. ADVIL [Concomitant]
     Active Substance: IBUPROFEN
  6. AMPHETAMINE SALTS [Suspect]
     Active Substance: AMPHETAMINE ASPARTATE\AMPHETAMINE SULFATE\DEXTROAMPHETAMINE SACCHARATE\DEXTROAMPHETAMINE SULFATE
     Indication: ATTENTION DEFICIT/HYPERACTIVITY DISORDER
     Route: 048
     Dates: start: 20150625, end: 20150626
  7. PRISTIQ EXTENDED RELEASE [Concomitant]
     Active Substance: DESVENLAFAXINE SUCCINATE

REACTIONS (16)
  - Balance disorder [None]
  - Throat irritation [None]
  - Sinus congestion [None]
  - Fatigue [None]
  - Irritability [None]
  - Altered visual depth perception [None]
  - Aphasia [None]
  - Eye pruritus [None]
  - Nasal pruritus [None]
  - Sneezing [None]
  - Anger [None]
  - Headache [None]
  - Dizziness [None]
  - Nausea [None]
  - Pruritus [None]
  - Ear pruritus [None]

NARRATIVE: CASE EVENT DATE: 20150626
